FAERS Safety Report 25123708 (Version 1)
Quarter: 2025Q1

REPORT INFORMATION
  Report Type: Spontaneous
  Country: US (occurrence: None)
  Receive Date: 20250326
  Receipt Date: 20250326
  Transmission Date: 20250409
  Serious: Yes (Hospitalization)
  Sender: FDA-CTU
  Company Number: None

PATIENT
  Age: 74 Year
  Sex: Male

DRUGS (12)
  1. ESBRIET [Suspect]
     Active Substance: PIRFENIDONE
     Indication: Idiopathic pulmonary fibrosis
     Dosage: FREQUENCY : 3 TIMES A DAY;?
     Route: 048
     Dates: start: 20180829
  2. AMOXICILLIN [Concomitant]
     Active Substance: AMOXICILLIN
  3. ATORVASTATIN TAB 10MG [Concomitant]
  4. ATORVASTATIN TAB 10MG [Concomitant]
  5. CARTIAXT CAP 120/24HR [Concomitant]
  6. FARXIGA [Concomitant]
     Active Substance: DAPAGLIFLOZIN PROPANEDIOL
  7. PREDNISONE [Concomitant]
     Active Substance: PREDNISONE
  8. SERTRALINE TAB 50MG [Concomitant]
  9. SPI RONOLACT TAB 25MG [Concomitant]
  10. TIKOSYN CAP 500MCG [Concomitant]
  11. TOPPROL XL TAB 25MG [Concomitant]
  12. XARELTO [Concomitant]
     Active Substance: RIVAROXABAN

REACTIONS (3)
  - Taste disorder [None]
  - Therapy interrupted [None]
  - Pneumonia [None]

NARRATIVE: CASE EVENT DATE: 20240901
